FAERS Safety Report 22193108 (Version 2)
Quarter: 2023Q2

REPORT INFORMATION
  Report Type: Spontaneous
  Country: US (occurrence: US)
  Receive Date: 20230410
  Receipt Date: 20230427
  Transmission Date: 20230721
  Serious: Yes (Other)
  Sender: FDA-Public Use
  Company Number: US-BRISTOL-MYERS SQUIBB COMPANY-2023-050927

PATIENT
  Age: 96 Year
  Sex: Female
  Weight: 72.57 kg

DRUGS (14)
  1. ELIQUIS [Suspect]
     Active Substance: APIXABAN
     Indication: Cerebrovascular accident prophylaxis
     Route: 048
     Dates: start: 20181106
  2. ELIQUIS [Suspect]
     Active Substance: APIXABAN
     Dosage: TAKE 1 TABLET BY MOUTH EVERY 12 HOURS-ORAL
     Route: 048
     Dates: start: 20230330
  3. AMLODIPINE [Concomitant]
     Active Substance: AMLODIPINE BESYLATE
     Indication: Product used for unknown indication
     Dosage: TAKE ONE TABLET BY MOUTH ONCE DAILY
     Route: 048
     Dates: start: 20221024
  4. ASTELIN [Concomitant]
     Active Substance: AZELASTINE HYDROCHLORIDE
     Indication: Product used for unknown indication
     Dosage: 1 SPRAY BY MOUTH NASAL ROUTE 2 TIMES DAILY USE IN EACH NOSTRIL AS DIRECTED-NASAL.
     Route: 045
     Dates: start: 20220428
  5. COREG [Concomitant]
     Active Substance: CARVEDILOL
     Indication: Product used for unknown indication
     Dosage: 1 TABLET BY MOUTH TWICE A DAY
     Route: 048
     Dates: start: 20230124
  6. D-MANNOSE [Concomitant]
     Indication: Product used for unknown indication
     Dosage: TAKE 2000 MG BY MOUTH DAILY. TAKE WITH 8 OZ OF FLUID. FOR PREVENTION FOR UTI-ORAL
     Route: 048
     Dates: start: 20220817
  7. EFUDEX [Concomitant]
     Active Substance: FLUOROURACIL
     Indication: Product used for unknown indication
     Dosage: ALLOW THE RIGHT KNEE TO HEAL FOR 2 WEEKS, THEN APPLY TWICE DAILY X 4 WEEKS
     Route: 061
     Dates: start: 20220913
  8. FLONASE [Concomitant]
     Active Substance: FLUTICASONE PROPIONATE
     Indication: Product used for unknown indication
     Dosage: 1 SPRAY BY EACH NASAL ROUTE DAILY. FOR DRAINAGE OF THE NOSE. EACH NOSE
     Route: 045
     Dates: start: 20210803
  9. XYLOCAINE [Concomitant]
     Active Substance: LIDOCAINE HYDROCHLORIDE
     Indication: Product used for unknown indication
     Dosage: APPLY THIN LAY OF OINTMENT TO SITE OF PAIN ON RIGHT HAND AS NEEDED. UP TO 2 TIMES PER DAY. DO NOT US
     Route: 061
     Dates: start: 20221229
  10. ICY HOT [Concomitant]
     Active Substance: MENTHOL\METHYL SALICYLATE
     Indication: Product used for unknown indication
     Dosage: APPLY TOPICAL AS NEEDED (SHOULDER PAIN)- TOPICAL
     Route: 061
     Dates: start: 20221017
  11. MIRABEGRON [Concomitant]
     Active Substance: MIRABEGRON
     Indication: Product used for unknown indication
     Dosage: TAKE 1 TABLET BY MOUTH DAILY. REPLACES OXYBUTYNIN. FOR BLADDER-ORAL.
     Route: 048
  12. KLOR-CON M20 [Concomitant]
     Active Substance: POTASSIUM CHLORIDE
     Indication: Product used for unknown indication
     Dosage: TAKE ONE TABLET BY MOUTH 2 TIMES DAILY ORAL
     Route: 048
     Dates: start: 20230105
  13. CRESTOR [Concomitant]
     Active Substance: ROSUVASTATIN CALCIUM
     Indication: Product used for unknown indication
     Dosage: TAKE 1 TABLET BY MOUTH AT BED TIME, PLEASE NOTE TABLET STRENGTH-ORAL.
     Route: 048
     Dates: start: 20230306
  14. KENALOG [Concomitant]
     Active Substance: TRIAMCINOLONE ACETONIDE
     Indication: Product used for unknown indication
     Dosage: APPLY A THIN LAYER TO THE AFFECTED AREA TWICE DAILY TO THE AREA ON THE LEFT NECK
     Route: 061
     Dates: start: 20210803

REACTIONS (2)
  - Adverse event [Unknown]
  - Incision site haemorrhage [Recovered/Resolved]

NARRATIVE: CASE EVENT DATE: 20230313
